FAERS Safety Report 5520776-X (Version None)
Quarter: 2007Q4

REPORT INFORMATION
  Report Type: 
  Country: None (occurrence: None)
  Receive Date: 20071115
  Receipt Date: 20071115
  Transmission Date: 20080405
  Serious: Yes (Other)
  Sender: FDA-Public Use
  Company Number: None

PATIENT
  Age: 39 Year
  Sex: Female
  Weight: 52.1637 kg

DRUGS (1)
  1. LYRICA [Suspect]
     Indication: FACIAL NEURALGIA
     Dosage: 50-75 MG 2 TO 3 TIMES A DAY PO
     Route: 048

REACTIONS (1)
  - ALOPECIA [None]
